FAERS Safety Report 5311379-0 (Version None)
Quarter: 2007Q2

REPORT INFORMATION
  Report Type: 
  Country: None (occurrence: None)
  Receive Date: 20070430
  Receipt Date: 20070409
  Transmission Date: 20071010
  Serious: Yes (Life-Threatening, Hospitalization)
  Sender: FDA-Public Use
  Company Number: PHHO2007TR06253

PATIENT
  Age: 74 Year
  Sex: Male
  Weight: 72 kg

DRUGS (1)
  1. VEA489 VS VAH631 VS VAA489 VS HCTZ/AMLOD [Suspect]
     Indication: HYPERTENSION
     Dosage: DOUBLE-BLIND
     Route: 048
     Dates: start: 20070322, end: 20070406

REACTIONS (3)
  - CHEST PAIN [None]
  - DISEASE PROGRESSION [None]
  - MYOCARDIAL INFARCTION [None]
